FAERS Safety Report 14484546 (Version 2)
Quarter: 2018Q1

REPORT INFORMATION
  Report Type: Spontaneous
  Country: JP (occurrence: JP)
  Receive Date: 20180205
  Receipt Date: 20180209
  Transmission Date: 20180509
  Serious: Yes (Other)
  Sender: FDA-Public Use
  Company Number: JP-ROCHE-2066497

PATIENT
  Age: 16 Year
  Sex: Female

DRUGS (3)
  1. CELLCEPT [Suspect]
     Active Substance: MYCOPHENOLATE MOFETIL\MYCOPHENOLATE MOFETIL HYDROCHLORIDE
     Indication: PROPHYLAXIS AGAINST GRAFT VERSUS HOST DISEASE
     Dosage: DOSAGE IS UNCERTAIN.
     Route: 048
  2. TACROLIMUS HYDRATE [Concomitant]
     Active Substance: TACROLIMUS
     Dosage: DOSAGE IS UNCERTAIN.
     Route: 065
  3. CYCLOPHOSPHAMIDE. [Concomitant]
     Active Substance: CYCLOPHOSPHAMIDE
     Dosage: DOSE INTERVAL UNCERTAINTY?D3-4
     Route: 065

REACTIONS (11)
  - Device related sepsis [Recovered/Resolved]
  - Circulatory collapse [Unknown]
  - Off label use [Unknown]
  - Product use in unapproved indication [Unknown]
  - Respiratory failure [Unknown]
  - Mucous membrane disorder [Recovered/Resolved]
  - Pericardial effusion [Recovering/Resolving]
  - Pneumonia [Unknown]
  - Cystitis haemorrhagic [Recovered/Resolved]
  - Thrombotic microangiopathy [Unknown]
  - Pleural effusion [Recovering/Resolving]
